FAERS Safety Report 9148936 (Version 2)
Quarter: 2013Q2

REPORT INFORMATION
  Report Type: Spontaneous
  Country: US (occurrence: None)
  Receive Date: 20130304
  Receipt Date: 20130401
  Transmission Date: 20140414
  Serious: Yes (Hospitalization)
  Sender: FDA-Public Use
  Company Number: 145861

PATIENT
  Age: 60 Year
  Sex: Female

DRUGS (1)
  1. LEUCOVORIN CALCIUM FOR INJ. 50MG - BEDFORD LABS, INC. [Suspect]
     Indication: COLORECTAL CANCER METASTATIC
     Dosage: 400 MG/KG ON DAY 1 EVERY 14 DAYS
     Dates: start: 20121017, end: 20130102

REACTIONS (8)
  - General physical health deterioration [None]
  - Ascites [None]
  - Malignant neoplasm progression [None]
  - Colorectal cancer [None]
  - Pleural effusion [None]
  - Gamma-glutamyltransferase increased [None]
  - Blood alkaline phosphatase increased [None]
  - Blood albumin decreased [None]
